FAERS Safety Report 4507513-2 (Version None)
Quarter: 2004Q4

REPORT INFORMATION
  Report Type: 
  Country: None (occurrence: None)
  Receive Date: 20041118
  Receipt Date: 20041105
  Transmission Date: 20050328
  Serious: Yes (Hospitalization, Other)
  Sender: FDA-Public Use
  Company Number: 2004-0007322

PATIENT
  Age: 41 Year
  Sex: Female
  Weight: 46.2 kg

DRUGS (18)
  1. VISTIDE [Suspect]
     Indication: CYTOMEGALOVIRUS CHORIORETINITIS
     Dosage: 225 MG, 1 IN 1 D, INTRAVENOUS
     Route: 042
     Dates: start: 20030925, end: 20030925
  2. VISTIDE [Suspect]
     Indication: CYTOMEGALOVIRUS CHORIORETINITIS
     Dosage: 225 MG, 1 IN 1 D, INTRAVENOUS
     Route: 042
     Dates: start: 20031003, end: 20031003
  3. VISTIDE [Suspect]
     Indication: CYTOMEGALOVIRUS CHORIORETINITIS
     Dosage: 225 MG, 1 IN 1 D, INTRAVENOUS
     Route: 042
     Dates: start: 20031020, end: 20031020
  4. VISTIDE [Suspect]
     Indication: CYTOMEGALOVIRUS CHORIORETINITIS
     Dosage: 225 MG, 1 IN 1 D, INTRAVENOUS
     Route: 042
     Dates: start: 20031029, end: 20031029
  5. VISTIDE [Suspect]
     Indication: CYTOMEGALOVIRUS CHORIORETINITIS
     Dosage: 225 MG, 1 IN 1 D, INTRAVENOUS
     Route: 042
     Dates: start: 20040427, end: 20040427
  6. VISTIDE [Suspect]
     Indication: CYTOMEGALOVIRUS CHORIORETINITIS
     Dosage: 225 MG, 1 IN 1 D, INTRAVENOUS
     Route: 042
     Dates: start: 20040504, end: 20040504
  7. VALGANCICLOVIR (VALGANCICLOVIR) [Concomitant]
  8. EUSAPRIM (CO-TRIMOXAZOLE) [Concomitant]
  9. TENOFOVIR DISOPROXIL FUMARATE (TENOFOVIR DISOPROXIL FUMARATE) [Concomitant]
  10. EPIVIR [Concomitant]
  11. LOPINAVIR [Concomitant]
  12. SUSTIVA [Concomitant]
  13. PYRAZINAMIDE [Concomitant]
  14. MYAMBUTOL [Concomitant]
  15. ISOZID (ISONIAZID) [Concomitant]
  16. FLUCONAZOLE [Concomitant]
  17. INVIRASE [Concomitant]
  18. RIFABUTIN (RIFABUTIN) [Concomitant]

REACTIONS (8)
  - ACIDOSIS [None]
  - BLOOD CREATININE INCREASED [None]
  - CYSTITIS HAEMORRHAGIC [None]
  - DEHYDRATION [None]
  - DIALYSIS [None]
  - ESCHERICHIA SEPSIS [None]
  - RENAL FAILURE [None]
  - THROMBOCYTOPENIA [None]
